FAERS Safety Report 6108624-0 (Version None)
Quarter: 2009Q1

REPORT INFORMATION
  Report Type: 
  Country: None (occurrence: None)
  Receive Date: 20090305
  Receipt Date: 20090223
  Transmission Date: 20090719
  Serious: Yes (Disabling, Other)
  Sender: FDA-Public Use
  Company Number: OSCN-NO-0902S-0108

PATIENT
  Age: 58 Year
  Sex: Female

DRUGS (7)
  1. OMNISCAN [Suspect]
     Indication: DRUG USE FOR UNKNOWN INDICATION
     Dosage: 40 ML, SINGLE DOSE, I.V.
     Route: 042
     Dates: start: 20030730, end: 20030730
  2. SANDIMMUNE [Concomitant]
  3. AZATHIOPRINE (IMUREL) [Concomitant]
  4. FUROSEMIDE (FURIX) [Concomitant]
  5. PANTOPRAZOLE SODIUM [Concomitant]
  6. BACTRIM (SULFOTRIM) [Concomitant]
  7. CALCIUM D3 (UNIKALK PLUS) [Concomitant]

REACTIONS (3)
  - ARTERIOSCLEROSIS [None]
  - NEPHROGENIC SYSTEMIC FIBROSIS [None]
  - SPINAL COLUMN STENOSIS [None]
